FAERS Safety Report 7261855-9 (Version None)
Quarter: 2011Q1

REPORT INFORMATION
  Report Type: 
  Country: None (occurrence: None)
  Receive Date: 20110130
  Receipt Date: 20101201
  Transmission Date: 20110831
  Serious: Yes (Hospitalization)
  Sender: FDA-Public Use
  Company Number: US-ABBOTT-10P-163-0688708-00

PATIENT
  Sex: Male
  Weight: 65.83 kg

DRUGS (4)
  1. LOMOTIL [Concomitant]
     Indication: PRODUCT USED FOR UNKNOWN INDICATION
  2. IMODIUM [Concomitant]
     Indication: PRODUCT USED FOR UNKNOWN INDICATION
     Dosage: 4-6 PER DAY
  3. VITAMIN B-12 [Concomitant]
     Indication: PRODUCT USED FOR UNKNOWN INDICATION
  4. HUMIRA [Suspect]
     Indication: CROHN'S DISEASE
     Dates: start: 20080101

REACTIONS (11)
  - LACRIMATION INCREASED [None]
  - SMALL INTESTINE ULCER [None]
  - CONJUNCTIVITIS INFECTIVE [None]
  - NODULE [None]
  - INFLUENZA [None]
  - BACK PAIN [None]
  - EYE DISCHARGE [None]
  - CROHN'S DISEASE [None]
  - OCULAR HYPERAEMIA [None]
  - POLYP [None]
  - CONJUNCTIVITIS [None]
